FAERS Safety Report 6978496-0 (Version None)
Quarter: 2010Q3

REPORT INFORMATION
  Report Type: 
  Country: None (occurrence: None)
  Receive Date: 20100913
  Receipt Date: 20100820
  Transmission Date: 20110219
  Serious: No
  Sender: FDA-Public Use
  Company Number: US-BAYER-201032188NA

PATIENT
  Sex: Male

DRUGS (2)
  1. BETASERON [Suspect]
     Indication: PRODUCT USED FOR UNKNOWN INDICATION
     Dosage: AS USED: 8 MIU
     Route: 058
  2. BETASERON [Suspect]
     Dosage: REDUCED DOSE
     Route: 058

REACTIONS (1)
  - NEUTROPHIL COUNT DECREASED [None]
